FAERS Safety Report 12445375 (Version 6)
Quarter: 2016Q3

REPORT INFORMATION
  Report Type: Report from Study
  Country: DE (occurrence: DE)
  Receive Date: 20160607
  Receipt Date: 20160920
  Transmission Date: 20161109
  Serious: Yes (Death, Hospitalization)
  Sender: FDA-Public Use
  Company Number: DE-BEH-2016070019

PATIENT
  Age: 70 Year
  Sex: Female
  Weight: 55 kg

DRUGS (4)
  1. PRIVIGEN [Suspect]
     Active Substance: HUMAN IMMUNOGLOBULIN G
     Dosage: 20 G, UNK
     Route: 065
     Dates: start: 20160224, end: 20160224
  2. PRIVIGEN [Suspect]
     Active Substance: HUMAN IMMUNOGLOBULIN G
     Dosage: 20 G, UNK
     Route: 065
     Dates: start: 20160120, end: 20160120
  3. PRIVIGEN [Suspect]
     Active Substance: HUMAN IMMUNOGLOBULIN G
     Indication: NON-HODGKIN^S LYMPHOMA
     Dosage: 20 G, UNK
     Route: 065
     Dates: start: 20160106, end: 20160106
  4. PRIVIGEN [Suspect]
     Active Substance: HUMAN IMMUNOGLOBULIN G
     Dosage: 20 G, UNK
     Route: 065
     Dates: start: 20160203, end: 20160203

REACTIONS (10)
  - Gastroenteritis norovirus [Unknown]
  - Neoplasm progression [Fatal]
  - Diarrhoea [Unknown]
  - Vertigo [Unknown]
  - Fall [Unknown]
  - Systemic infection [Fatal]
  - Asthenia [Unknown]
  - Musculoskeletal pain [Unknown]
  - Bone marrow infiltration [Fatal]
  - General physical health deterioration [Unknown]
